FAERS Safety Report 16146197 (Version 1)
Quarter: 2019Q2

REPORT INFORMATION
  Report Type: Spontaneous
  Country: US (occurrence: US)
  Receive Date: 20190402
  Receipt Date: 20190402
  Transmission Date: 20190711
  Serious: No
  Sender: FDA-Public Use
  Company Number: US-PFIZER INC-2019142311

PATIENT
  Age: 53 Year
  Sex: Male

DRUGS (3)
  1. GENOTROPIN MQ [Suspect]
     Active Substance: SOMATROPIN
     Dosage: 0.2 MG, EVERY OTHER DAY
  2. GENOTROPIN MQ [Suspect]
     Active Substance: SOMATROPIN
     Dosage: 0.2 MG, DAILY
  3. GENOTROPIN MQ [Suspect]
     Active Substance: SOMATROPIN
     Dosage: 0.2 MG, DAILY
     Dates: end: 201812

REACTIONS (6)
  - Fatigue [Unknown]
  - Malaise [Unknown]
  - Pain [Unknown]
  - Insulin-like growth factor increased [Unknown]
  - Arthralgia [Unknown]
  - Intentional product use issue [Unknown]
